FAERS Safety Report 15947313 (Version 2)
Quarter: 2019Q3

REPORT INFORMATION
  Report Type: Spontaneous
  Country: US (occurrence: US)
  Receive Date: 20190211
  Receipt Date: 20190821
  Transmission Date: 20191004
  Serious: Yes (Other)
  Sender: FDA-Public Use
  Company Number: US-ASTRAZENECA-2019SE10088

PATIENT
  Sex: Female

DRUGS (18)
  1. AMOXICILLIN. [Concomitant]
     Active Substance: AMOXICILLIN
  2. ATORVASTATIN [Concomitant]
     Active Substance: ATORVASTATIN
  3. VITAMIN D [Concomitant]
     Active Substance: VITAMIN D NOS
  4. TIZANIDINE. [Concomitant]
     Active Substance: TIZANIDINE
  5. CLONAZEPAM. [Concomitant]
     Active Substance: CLONAZEPAM
  6. CETRIZINE [Concomitant]
     Active Substance: CETIRIZINE HYDROCHLORIDE
  7. AMLODIPINE BESYLATE. [Concomitant]
     Active Substance: AMLODIPINE BESYLATE
  8. NEXIUM [Suspect]
     Active Substance: ESOMEPRAZOLE MAGNESIUM
     Dosage: 40.0MG UNKNOWN
     Route: 048
     Dates: start: 20131111
  9. VENTOLIN [Concomitant]
     Active Substance: ALBUTEROL SULFATE
  10. ERYTHROMYCIN. [Concomitant]
     Active Substance: ERYTHROMYCIN
  11. NEXIUM [Suspect]
     Active Substance: ESOMEPRAZOLE MAGNESIUM
     Route: 048
     Dates: start: 2011, end: 2012
  12. GABAPENTIN. [Concomitant]
     Active Substance: GABAPENTIN
  13. METHOCARBAMOL. [Concomitant]
     Active Substance: METHOCARBAMOL
  14. PROAIR HFA [Concomitant]
     Active Substance: ALBUTEROL SULFATE
  15. SULFAMETHOXAZOLE [Concomitant]
     Active Substance: SULFAMETHOXAZOLE
  16. NEXIUM [Suspect]
     Active Substance: ESOMEPRAZOLE MAGNESIUM
     Dosage: 40.0MG UNKNOWN
     Route: 048
     Dates: start: 20130620
  17. LISINOPRIL. [Concomitant]
     Active Substance: LISINOPRIL
  18. FUROSEMIDE. [Concomitant]
     Active Substance: FUROSEMIDE

REACTIONS (7)
  - Renal injury [Unknown]
  - End stage renal disease [Unknown]
  - Chronic kidney disease [Unknown]
  - Rebound acid hypersecretion [Unknown]
  - Renal tubular injury [Unknown]
  - Renal failure [Unknown]
  - Acute kidney injury [Unknown]
